FAERS Safety Report 16470760 (Version 2)
Quarter: 2019Q2

REPORT INFORMATION
  Report Type: Spontaneous
  Country: US (occurrence: US)
  Receive Date: 20190624
  Receipt Date: 20190626
  Transmission Date: 20190711
  Serious: Yes (Life-Threatening, Other)
  Sender: FDA-Public Use
  Company Number: US-PFIZER INC-2007035985

PATIENT
  Age: 40 Year
  Sex: Female
  Weight: 73 kg

DRUGS (18)
  1. LIDOCAINE. [Concomitant]
     Active Substance: LIDOCAINE
     Indication: INDUCTION OF ANAESTHESIA
     Dosage: 80 MG, SINGLE
     Route: 042
  2. DEXAMETHASONE. [Concomitant]
     Active Substance: DEXAMETHASONE
     Indication: PROPHYLAXIS OF NAUSEA AND VOMITING
     Dosage: 4 MG, SINGLE
     Route: 042
  3. PROPOFOL. [Concomitant]
     Active Substance: PROPOFOL
     Indication: INDUCTION OF ANAESTHESIA
     Dosage: 150 MG, SINGLE
     Route: 042
  4. ESCITALOPRAM [Concomitant]
     Active Substance: ESCITALOPRAM OXALATE
     Indication: ANXIETY
     Dosage: UNK
  5. PHENYLEPHRINE [Concomitant]
     Active Substance: PHENYLEPHRINE\PHENYLEPHRINE HYDROCHLORIDE
     Indication: BLOOD PRESSURE INCREASED
     Dosage: 200 UG, UNK
     Route: 042
  6. ESMOLOL [Concomitant]
     Active Substance: ESMOLOL HYDROCHLORIDE
     Dosage: 50 MG, UNK, (TOTAL OF 50 MG ESMOLOL WAS GIVEN INTRAVENOUSLY IN INCREMENTAL DOSES)
     Route: 042
  7. HYDROCORTISONE. [Concomitant]
     Active Substance: HYDROCORTISONE
     Dosage: 300 MG, SINGLE
     Route: 042
  8. DIPHENHYDRAMINE. [Concomitant]
     Active Substance: DIPHENHYDRAMINE
     Dosage: 50 MG, SINGLE
     Route: 042
  9. FAMOTIDINE. [Concomitant]
     Active Substance: FAMOTIDINE
     Dosage: 20 MG, SINGLE
     Route: 042
  10. ROCURONIUM [Concomitant]
     Active Substance: ROCURONIUM BROMIDE
     Dosage: 40 MG, UNK
     Route: 042
  11. EPHEDRINE. [Concomitant]
     Active Substance: EPHEDRINE
     Dosage: 20 UG, SINGLE
     Route: 042
  12. EPHEDRINE. [Concomitant]
     Active Substance: EPHEDRINE
     Dosage: UNK (ADDITIONAL EPINEPHRINE WAS GIVEN)
     Route: 042
  13. ONDANSETRON [Concomitant]
     Active Substance: ONDANSETRON
     Indication: PROPHYLAXIS OF NAUSEA AND VOMITING
     Dosage: 4 MG, SINGLE
     Route: 042
  14. FENTANYL CITRATE. [Suspect]
     Active Substance: FENTANYL CITRATE
     Indication: INDUCTION OF ANAESTHESIA
     Dosage: 100 UG, SINGLE
     Route: 042
     Dates: start: 2006
  15. EPHEDRINE. [Concomitant]
     Active Substance: EPHEDRINE
     Dosage: 10 MG, SINGLE
     Route: 042
  16. MIDAZOLAM [Concomitant]
     Active Substance: MIDAZOLAM HYDROCHLORIDE
     Indication: INDUCTION OF ANAESTHESIA
     Dosage: 2 MG, UNK
     Route: 042
  17. METOCLOPRAMIDE. [Concomitant]
     Active Substance: METOCLOPRAMIDE
     Indication: PROPHYLAXIS OF NAUSEA AND VOMITING
     Dosage: 10 MG, SINGLE
     Route: 042
  18. SEVOFLURANE. [Concomitant]
     Active Substance: SEVOFLURANE
     Dosage: 2 %, [SEVOFLURANE 2% IN 50% OXYGEN, 50%]

REACTIONS (2)
  - Pulmonary oedema [Recovered/Resolved]
  - Anaphylactic reaction [Recovered/Resolved]
